FAERS Safety Report 7679343-4 (Version None)
Quarter: 2011Q3

REPORT INFORMATION
  Report Type: 
  Country: None (occurrence: None)
  Receive Date: 20110812
  Receipt Date: 20110624
  Transmission Date: 20111222
  Serious: Yes (Death, Other)
  Sender: FDA-Public Use
  Company Number: US-JNJFOC-20110409010

PATIENT
  Age: 36 Year
  Sex: Male

DRUGS (25)
  1. VENLAFAXINE [Interacting]
     Indication: PRODUCT USED FOR UNKNOWN INDICATION
     Route: 065
  2. PROMETHAZINE [Concomitant]
     Route: 065
  3. LORAZEPAM [Concomitant]
     Route: 065
  4. FUROSEMIDE [Concomitant]
     Route: 065
  5. ACETAMINOPHEN [Concomitant]
     Route: 065
  6. TRAMADOL HCL [Suspect]
     Indication: PAIN
     Route: 048
  7. QUETIAPINE [Interacting]
     Indication: PRODUCT USED FOR UNKNOWN INDICATION
     Route: 065
  8. METOPROLOL TARTRATE [Concomitant]
     Route: 065
  9. FOLIC ACID [Concomitant]
     Route: 065
  10. THIAMINE [Concomitant]
     Route: 065
  11. FAMOTIDINE [Concomitant]
     Route: 065
  12. VENLAFAXINE [Interacting]
     Route: 065
  13. VITAMIN B NOS [Concomitant]
     Route: 065
  14. CHLORDIAZEPOXIDE [Concomitant]
     Route: 065
  15. TEMAZEPAM [Concomitant]
     Route: 065
  16. METOCLOPRAMIDE [Concomitant]
     Route: 065
  17. TRAZODONE HCL [Interacting]
     Indication: PRODUCT USED FOR UNKNOWN INDICATION
     Route: 065
  18. QUETIAPINE [Interacting]
     Route: 065
  19. DOCUSATE SODIUM [Concomitant]
     Route: 065
  20. ENALAPRIL MALEATE [Concomitant]
     Route: 065
  21. BENZONATATE [Concomitant]
     Route: 065
  22. LANSOPRAZOLE [Concomitant]
     Route: 065
  23. RANIDINE [Concomitant]
     Route: 065
  24. TRAZODONE HCL [Interacting]
     Route: 065
  25. LITHIUM [Concomitant]
     Route: 065

REACTIONS (10)
  - OVERDOSE [None]
  - INSOMNIA [None]
  - DEATH [None]
  - CIRCULATORY COLLAPSE [None]
  - CONVULSION [None]
  - CONVULSIVE THRESHOLD LOWERED [None]
  - TONGUE DISORDER [None]
  - TREMOR [None]
  - DRUG INTERACTION [None]
  - HEAD INJURY [None]
